FAERS Safety Report 12883021 (Version 4)
Quarter: 2021Q2

REPORT INFORMATION
  Report Type: Spontaneous
  Country: US (occurrence: US)
  Receive Date: 20161025
  Receipt Date: 20210413
  Transmission Date: 20210716
  Serious: No
  Sender: FDA-Public Use
  Company Number: US-SA-2016SA163541

PATIENT
  Sex: Female
  Weight: 60.77 kg

DRUGS (3)
  1. LUMIZYME [Suspect]
     Active Substance: ALGLUCOSIDASE ALFA
     Indication: GLYCOGEN STORAGE DISEASE TYPE II
     Dosage: 40.36 MG/KG, QOW
     Route: 041
  2. LUMIZYME [Suspect]
     Active Substance: ALGLUCOSIDASE ALFA
     Dosage: 41.17 MG/KG, QW
     Route: 042
     Dates: start: 20201222
  3. LUMIZYME [Suspect]
     Active Substance: ALGLUCOSIDASE ALFA
     Indication: ILLNESS
     Dosage: 40.36 MG/KG, QOW
     Route: 041
     Dates: start: 20191029

REACTIONS (2)
  - Asthenia [Not Recovered/Not Resolved]
  - Off label use [Unknown]

NARRATIVE: CASE EVENT DATE: 201608
